FAERS Safety Report 24283640 (Version 1)
Quarter: 2024Q3

REPORT INFORMATION
  Report Type: Report from Study
  Country: CN (occurrence: CN)
  Receive Date: 20240904
  Receipt Date: 20240904
  Transmission Date: 20241016
  Serious: Yes (Death, Other)
  Sender: JOHNSON AND JOHNSON
  Company Number: CN-JNJFOC-20240871615

PATIENT

DRUGS (1)
  1. CILTACABTAGENE AUTOLEUCEL [Suspect]
     Active Substance: CILTACABTAGENE AUTOLEUCEL
     Indication: Plasma cell myeloma refractory
     Route: 065

REACTIONS (6)
  - Adverse event [Fatal]
  - Acute respiratory distress syndrome [Unknown]
  - Acute respiratory failure [Unknown]
  - Respiratory failure [Unknown]
  - Hypoxia [Unknown]
  - Tachypnoea [Unknown]
